FAERS Safety Report 5600695-0 (Version None)
Quarter: 2008Q1

REPORT INFORMATION
  Report Type: 
  Country: None (occurrence: None)
  Receive Date: 20080123
  Receipt Date: 20080111
  Transmission Date: 20080703
  Serious: Yes (Hospitalization, Other)
  Sender: FDA-Public Use
  Company Number: DE-PFIZER INC-2007090164

PATIENT
  Sex: Female
  Weight: 62 kg

DRUGS (7)
  1. GABAPENTIN [Suspect]
     Indication: PAIN
  2. LYRICA [Suspect]
     Indication: NEURALGIA
     Dosage: DAILY DOSE:225MG
     Route: 048
  3. OPIOIDS [Suspect]
     Indication: PAIN
  4. OTHER HYPNOTICS AND SEDATIVES [Suspect]
  5. DIAZEPAM [Concomitant]
  6. ATOSIL [Concomitant]
  7. MADOPAR [Concomitant]

REACTIONS (3)
  - BEDRIDDEN [None]
  - FATIGUE [None]
  - PAIN [None]
